FAERS Safety Report 9445697 (Version 2)
Quarter: 2013Q4

REPORT INFORMATION
  Report Type: Report from Study
  Country: JP (occurrence: JP)
  Receive Date: 20130807
  Receipt Date: 20131223
  Transmission Date: 20140711
  Serious: Yes (Other)
  Sender: FDA-Public Use
  Company Number: JP-JNJFOC-20130610043

PATIENT
  Age: 59 Year
  Sex: Female
  Weight: 53 kg

DRUGS (12)
  1. SIMPONI [Suspect]
     Indication: RHEUMATOID ARTHRITIS
     Route: 058
     Dates: start: 20121130
  2. SIMPONI [Suspect]
     Indication: RHEUMATOID ARTHRITIS
     Route: 058
     Dates: start: 20121102
  3. ISCOTIN [Suspect]
     Indication: PROPHYLAXIS
     Route: 065
     Dates: start: 20121012, end: 20130620
  4. METHOTREXATE [Concomitant]
     Indication: RHEUMATOID ARTHRITIS
  5. PREDONINE [Concomitant]
     Indication: RHEUMATOID ARTHRITIS
     Route: 048
     Dates: end: 20130222
  6. PREDONINE [Concomitant]
     Indication: RHEUMATOID ARTHRITIS
     Route: 048
     Dates: start: 20130223, end: 20130322
  7. PREDONINE [Concomitant]
     Indication: RHEUMATOID ARTHRITIS
     Route: 048
     Dates: start: 20130323, end: 20130329
  8. PREDONINE [Concomitant]
     Indication: RHEUMATOID ARTHRITIS
     Route: 048
     Dates: start: 20130330, end: 20130405
  9. CELECOX [Concomitant]
     Indication: RHEUMATOID ARTHRITIS
     Route: 048
     Dates: end: 20130124
  10. FOLIAMIN [Concomitant]
     Indication: PROPHYLAXIS
     Route: 048
  11. GASLON [Concomitant]
     Indication: PROPHYLAXIS
     Route: 048
  12. TAKEPRON [Concomitant]
     Indication: PROPHYLAXIS
     Route: 048

REACTIONS (1)
  - Liver disorder [Recovered/Resolved]
